FAERS Safety Report 7973928-3 (Version None)
Quarter: 2011Q4

REPORT INFORMATION
  Report Type: 
  Country: None (occurrence: None)
  Receive Date: 20111129
  Receipt Date: 20110830
  Transmission Date: 20120403
  Serious: Yes (Hospitalization, Other)
  Sender: FDA-Public Use
  Company Number: PHEH2011US01060

PATIENT
  Age: 60 Year
  Sex: Male
  Weight: 73.4 kg

DRUGS (6)
  1. HYDROCODONE BITARTRATE + ACETAMINOPHEN [Concomitant]
  2. COMPAZINE [Concomitant]
  3. SENOKOT-S (DOCUSATE SODIUM, SENNA, SENNA ALEXANDRINA) [Concomitant]
  4. AFINITOR [Suspect]
     Indication: RENAL CANCER
     Dosage: 10 MG, DAILY, ORAL ; 10 MG, ORAL
     Route: 048
     Dates: start: 20110615
  5. AFINITOR [Suspect]
     Indication: RENAL CANCER
     Dosage: 10 MG, DAILY, ORAL ; 10 MG, ORAL
     Route: 048
     Dates: start: 20110622, end: 20110707
  6. MS CONTIN [Concomitant]

REACTIONS (1)
  - THROMBOCYTOPENIA [None]
